FAERS Safety Report 8278125-2 (Version None)
Quarter: 2012Q2

REPORT INFORMATION
  Report Type: 
  Country: None (occurrence: None)
  Receive Date: 20120412
  Receipt Date: 20110924
  Transmission Date: 20120825
  Serious: No
  Sender: FDA-Public Use
  Company Number: US-ASTRAZENECA-2011SE57603

PATIENT
  Age: 21271 Day
  Sex: Female
  Weight: 85.7 kg

DRUGS (7)
  1. JANUVIA [Concomitant]
     Indication: DIABETES MELLITUS
  2. LANTUS [Concomitant]
  3. METFORMIN HCL [Concomitant]
     Indication: DIABETES MELLITUS
  4. HUMALOG [Concomitant]
     Indication: DIABETES MELLITUS
  5. NEXIUM [Suspect]
     Indication: GASTROOESOPHAGEAL REFLUX DISEASE
     Route: 048
     Dates: start: 20110923, end: 20110924
  6. METOPROLOL TARTRATE [Concomitant]
     Indication: HYPERTENSION
  7. HYDROCHLOROTHIAZIDE [Concomitant]

REACTIONS (5)
  - GINGIVAL SWELLING [None]
  - LIP SWELLING [None]
  - SWOLLEN TONGUE [None]
  - HYPERSENSITIVITY [None]
  - STOMATITIS [None]
